FAERS Safety Report 19944915 (Version 1)
Quarter: 2021Q4

REPORT INFORMATION
  Report Type: Spontaneous
  Country: US (occurrence: US)
  Receive Date: 20211012
  Receipt Date: 20211012
  Transmission Date: 20220304
  Serious: No
  Sender: FDA-Public Use
  Company Number: US-SA-SAC20211004000874

PATIENT
  Sex: Female

DRUGS (2)
  1. DUPIXENT [Suspect]
     Active Substance: DUPILUMAB
     Indication: Dermatitis atopic
     Dosage: 600 MG, 1X
     Route: 058
     Dates: start: 20210918
  2. COVID-19 VACCINE [Concomitant]

REACTIONS (4)
  - Epicondylitis [Unknown]
  - Peripheral swelling [Unknown]
  - Sleep disorder [Unknown]
  - Dermatitis atopic [Unknown]
